FAERS Safety Report 6004073-4 (Version None)
Quarter: 2008Q4

REPORT INFORMATION
  Report Type: 
  Country: None (occurrence: None)
  Receive Date: 20081216
  Receipt Date: 20081211
  Transmission Date: 20090506
  Serious: Yes (Hospitalization)
  Sender: FDA-Public Use
  Company Number: B0550474A

PATIENT
  Age: 10 Month
  Sex: Male

DRUGS (4)
  1. AUGMENTIN '125' [Suspect]
     Indication: UPPER RESPIRATORY TRACT INFECTION
     Dosage: 3.5ML TWICE PER DAY
     Route: 048
  2. LACIDOFIL [Concomitant]
  3. VIBOVIT [Concomitant]
  4. ACETAMINOPHEN [Concomitant]

REACTIONS (7)
  - ANXIETY [None]
  - ERYTHEMA [None]
  - PALLOR [None]
  - PHARYNGEAL DISORDER [None]
  - PRURITUS [None]
  - RASH GENERALISED [None]
  - RASH PAPULAR [None]
